FAERS Safety Report 9217595 (Version 1)
Quarter: 2013Q2

REPORT INFORMATION
  Report Type: Spontaneous
  Country: US (occurrence: US)
  Receive Date: 20130408
  Receipt Date: 20130408
  Transmission Date: 20140414
  Serious: No
  Sender: FDA-Public Use
  Company Number: US-PFIZER INC-2013110000

PATIENT
  Sex: Female

DRUGS (2)
  1. NEURONTIN [Suspect]
     Indication: FIBROMYALGIA
     Dosage: 100 MG, 1X/DAY
     Route: 048
     Dates: start: 201303, end: 20130405
  2. LYRICA [Concomitant]

REACTIONS (8)
  - Off label use [Unknown]
  - Crying [Unknown]
  - Discomfort [Unknown]
  - Confusional state [Unknown]
  - Anger [Unknown]
  - Malaise [Unknown]
  - Personality disorder [Unknown]
  - Phobia [Unknown]
